FAERS Safety Report 8229585-4 (Version None)
Quarter: 2012Q1

REPORT INFORMATION
  Report Type: 
  Country: None (occurrence: None)
  Receive Date: 20120322
  Receipt Date: 20120319
  Transmission Date: 20120608
  Serious: Yes (Other)
  Sender: FDA-Public Use
  Company Number: CA-ROCHE-1045769

PATIENT
  Sex: Female
  Weight: 57 kg

DRUGS (7)
  1. ACTEMRA [Suspect]
     Indication: RHEUMATOID ARTHRITIS
     Route: 042
     Dates: start: 20120202, end: 20120202
  2. CELEBREX [Concomitant]
     Route: 065
  3. SYNTHROID [Concomitant]
     Route: 065
  4. PANTOPRAZOLE [Concomitant]
     Route: 048
  5. METHOTREXATE [Concomitant]
     Route: 065
  6. PLAQUENIL [Concomitant]
     Route: 065
  7. TRIDURAL [Concomitant]
     Route: 048
     Dates: end: 20120129

REACTIONS (4)
  - HAEMOPTYSIS [None]
  - NAUSEA [None]
  - WEIGHT DECREASED [None]
  - PYREXIA [None]
